FAERS Safety Report 13241481 (Version 1)
Quarter: 2017Q1

REPORT INFORMATION
  Report Type: Spontaneous
  Country: US (occurrence: US)
  Receive Date: 20170216
  Receipt Date: 20170216
  Transmission Date: 20170428
  Serious: Yes (Hospitalization)
  Sender: FDA-Public Use
  Company Number: None

PATIENT
  Age: 82 Year
  Sex: Male
  Weight: 82 kg

DRUGS (1)
  1. APIXABAN [Suspect]
     Active Substance: APIXABAN
     Indication: DEEP VEIN THROMBOSIS
     Route: 048
     Dates: start: 20160630, end: 20161230

REACTIONS (4)
  - Haematuria [None]
  - Gastrointestinal haemorrhage [None]
  - Haematemesis [None]
  - Gastric haemorrhage [None]

NARRATIVE: CASE EVENT DATE: 20161028
